FAERS Safety Report 6834654-7 (Version None)
Quarter: 2010Q3

REPORT INFORMATION
  Report Type: 
  Country: None (occurrence: None)
  Receive Date: 20100712
  Receipt Date: 20071228
  Transmission Date: 20110219
  Serious: No
  Sender: FDA-Public Use
  Company Number: US-PFIZER INC-2007025202

PATIENT
  Sex: Female
  Weight: 70.8 kg

DRUGS (19)
  1. CHANTIX [Suspect]
     Indication: SMOKING CESSATION THERAPY
     Route: 048
     Dates: start: 20070307
  2. NEURONTIN [Concomitant]
     Indication: NEUROPATHY PERIPHERAL
  3. MEVACOR [Concomitant]
     Indication: BLOOD CHOLESTEROL INCREASED
  4. AVANDIA [Concomitant]
  5. EFFEXOR XR [Concomitant]
  6. POTASSIUM CHLORIDE [Concomitant]
  7. CLIDINIUM [Concomitant]
  8. AGGRENOX [Concomitant]
     Indication: VASCULITIS CEREBRAL
  9. ACETYLSALICYLIC ACID [Concomitant]
  10. MULTI-VITAMINS [Concomitant]
  11. STOOL SOFTENER [Concomitant]
  12. FISH OIL [Concomitant]
  13. SELENIUM [Concomitant]
  14. DIAZEPAM [Concomitant]
  15. HYDROCODONE BITARTRATE [Concomitant]
  16. GLUCOPHAGE [Concomitant]
     Indication: DIABETES MELLITUS
  17. HYDROCHLOROTHIAZIDE [Concomitant]
  18. POTASSIUM [Concomitant]
  19. MAXZIDE [Concomitant]

REACTIONS (4)
  - DEHYDRATION [None]
  - MALAISE [None]
  - NAUSEA [None]
  - VOMITING [None]
